FAERS Safety Report 9181275 (Version 2)
Quarter: 2013Q1

REPORT INFORMATION
  Report Type: Spontaneous
  Country: US (occurrence: US)
  Receive Date: 20130322
  Receipt Date: 20130322
  Transmission Date: 20140127
  Serious: No
  Sender: FDA-Public Use
  Company Number: US-MYLANLABS-2012S1026222

PATIENT
  Sex: Female
  Weight: 65.77 kg

DRUGS (4)
  1. EMSAM [Suspect]
     Indication: DEPRESSION
     Dosage: Q24H
     Route: 062
     Dates: start: 20120317, end: 201207
  2. EMSAM [Suspect]
     Indication: DEPRESSION
     Dosage: Q24H
     Route: 062
     Dates: start: 201207, end: 20121218
  3. SYNTHROID [Concomitant]
     Indication: AUTOIMMUNE THYROIDITIS
     Dates: start: 2009
  4. VIVELLE DOT [Concomitant]
     Indication: HORMONE REPLACEMENT THERAPY
     Route: 062
     Dates: start: 2009

REACTIONS (4)
  - Suicidal ideation [Not Recovered/Not Resolved]
  - Drug effect decreased [Not Recovered/Not Resolved]
  - Depression [Not Recovered/Not Resolved]
  - Product adhesion issue [None]
